FAERS Safety Report 22268810 (Version 2)
Quarter: 2023Q2

REPORT INFORMATION
  Report Type: Spontaneous
  Country: LV (occurrence: LV)
  Receive Date: 20230501
  Receipt Date: 20230517
  Transmission Date: 20230721
  Serious: Yes (Other)
  Sender: FDA-Public Use
  Company Number: LV-OTSUKA-2017_009957

PATIENT
  Age: 30 Year
  Sex: Female
  Weight: 70 kg

DRUGS (49)
  1. MOXIFLOXACIN [Suspect]
     Active Substance: MOXIFLOXACIN
     Indication: Pulmonary tuberculosis
     Dosage: 400 MG, QD
     Route: 048
     Dates: start: 20170310, end: 20170427
  2. MOXIFLOXACIN [Suspect]
     Active Substance: MOXIFLOXACIN
     Dosage: UNK
     Route: 065
  3. PROTIONAMIDE [Suspect]
     Active Substance: PROTIONAMIDE
     Indication: Pulmonary tuberculosis
     Dosage: 750 MG, QD (250 MG TID)
     Route: 048
     Dates: start: 20170406, end: 20170427
  4. PROTIONAMIDE [Suspect]
     Active Substance: PROTIONAMIDE
     Indication: Tuberculosis
     Dosage: 750 MG, QD
     Route: 048
     Dates: start: 20170410, end: 20170427
  5. PROTIONAMIDE [Suspect]
     Active Substance: PROTIONAMIDE
     Dosage: 250 MG, QD
     Route: 048
     Dates: start: 20170406, end: 20170409
  6. PROTIONAMIDE [Suspect]
     Active Substance: PROTIONAMIDE
     Dosage: 750 MG, QD (750 MG, QD)
     Route: 048
     Dates: start: 20170406, end: 20170409
  7. LINEZOLID [Suspect]
     Active Substance: LINEZOLID
     Indication: Pulmonary tuberculosis
     Dosage: 600 MG, QD
     Route: 048
     Dates: start: 20170310, end: 20170427
  8. LINEZOLID [Suspect]
     Active Substance: LINEZOLID
     Indication: Tuberculosis
     Dosage: 300 MG, QD
     Route: 048
     Dates: start: 20170525
  9. AMOXICILLIN\CLAVULANIC ACID [Suspect]
     Active Substance: AMOXICILLIN\CLAVULANIC ACID
     Indication: Pulmonary tuberculosis
     Dosage: 2000 MG, QD (1000 MG BID)
     Route: 048
     Dates: start: 20170310, end: 20170404
  10. AMOXICILLIN\CLAVULANIC ACID [Suspect]
     Active Substance: AMOXICILLIN\CLAVULANIC ACID
     Dosage: 1000 MG, QD (1000 MG, BID)
     Route: 048
     Dates: start: 20170310, end: 20170404
  11. AMOXICILLIN\CLAVULANIC ACID [Suspect]
     Active Substance: AMOXICILLIN\CLAVULANIC ACID
     Dosage: 1250 MG, QD (625 MG BID)
     Route: 048
     Dates: start: 20170405, end: 20170427
  12. AMOXICILLIN\CLAVULANIC ACID [Suspect]
     Active Substance: AMOXICILLIN\CLAVULANIC ACID
     Dosage: 1250 MG, QD (625 MG BID)
     Route: 048
     Dates: start: 20170526, end: 20170711
  13. AMOXICILLIN\CLAVULANIC ACID [Suspect]
     Active Substance: AMOXICILLIN\CLAVULANIC ACID
     Dosage: 625 MG, QD (625 MG, BID)
     Route: 048
     Dates: start: 20170526, end: 20170711
  14. AMOXICILLIN\CLAVULANIC ACID [Suspect]
     Active Substance: AMOXICILLIN\CLAVULANIC ACID
     Dosage: 625 MG, QD (625 MG BID)
     Route: 048
     Dates: start: 20170405, end: 20170427
  15. PAS [Suspect]
     Active Substance: AMINOSALICYLIC ACID
     Indication: Pulmonary tuberculosis
     Dosage: 8 G, QD (4 MG BID)
     Route: 048
     Dates: start: 20170425, end: 20170427
  16. PAS [Suspect]
     Active Substance: AMINOSALICYLIC ACID
     Dosage: 4 G, QD
     Route: 048
     Dates: start: 20170425, end: 20170427
  17. TERIZIDONE [Suspect]
     Active Substance: TERIZIDONE
     Indication: Pulmonary tuberculosis
     Dosage: 750 MG, QD (250 MG TID)
     Route: 048
     Dates: start: 20170310, end: 20170316
  18. TERIZIDONE [Suspect]
     Active Substance: TERIZIDONE
     Dosage: 750 MG, QD (250 MG TID)
     Route: 048
     Dates: start: 20170317, end: 20170405
  19. TERIZIDONE [Suspect]
     Active Substance: TERIZIDONE
     Dosage: 250 MG, QD
     Route: 048
     Dates: start: 20170310, end: 20170316
  20. IMIPENEM AND CILASTATIN [Suspect]
     Active Substance: CILASTATIN SODIUM\IMIPENEM
     Indication: Pulmonary tuberculosis
     Dosage: 2000 MG, QD (500 MG QID)
     Route: 042
     Dates: start: 20170313, end: 20170317
  21. IMIPENEM AND CILASTATIN [Suspect]
     Active Substance: CILASTATIN SODIUM\IMIPENEM
     Dosage: 2000 MG, QD (1000 MG BID)
     Route: 042
     Dates: start: 20170318, end: 20170427
  22. IMIPENEM AND CILASTATIN [Suspect]
     Active Substance: CILASTATIN SODIUM\IMIPENEM
     Dosage: 2 G, QD(1 G BID)
     Route: 042
     Dates: start: 20170526, end: 20170711
  23. IMIPENEM AND CILASTATIN [Suspect]
     Active Substance: CILASTATIN SODIUM\IMIPENEM
     Dosage: 500 MG, QD
     Route: 042
     Dates: start: 20170313, end: 20170317
  24. IMIPENEM AND CILASTATIN [Suspect]
     Active Substance: CILASTATIN SODIUM\IMIPENEM
     Dosage: 1000 MG, QD (1000 MG, BID)
     Route: 042
     Dates: start: 20170318, end: 20170427
  25. IMIPENEM AND CILASTATIN [Suspect]
     Active Substance: CILASTATIN SODIUM\IMIPENEM
     Dosage: 1 G, QD (1 G, BID)
     Route: 042
     Dates: start: 20170526, end: 20170711
  26. DELAMANID [Suspect]
     Active Substance: DELAMANID
     Indication: Pulmonary tuberculosis
     Dosage: 100 MG, QD (100 MG, BID)
     Route: 048
     Dates: start: 20170311, end: 20170427
  27. DELAMANID [Suspect]
     Active Substance: DELAMANID
     Dosage: 200 MG, QD (100 BID)
     Route: 048
     Dates: start: 20170311, end: 20170427
  28. DELAMANID [Suspect]
     Active Substance: DELAMANID
     Dosage: 200 MG, QD (100 BID)
     Route: 048
     Dates: start: 20170526
  29. DELAMANID [Suspect]
     Active Substance: DELAMANID
     Indication: Pulmonary tuberculosis
     Dosage: 200 MG, QD (100 MG BID)
     Route: 065
     Dates: start: 20170311, end: 20170427
  30. DELAMANID [Suspect]
     Active Substance: DELAMANID
     Dosage: 200 MG, QD (100 MG, BID)
     Route: 048
     Dates: start: 20170526
  31. NEURORUBIN [Concomitant]
     Indication: Prophylaxis
     Dosage: 2 DF, QD (1 DF BID)
     Route: 048
     Dates: start: 20170310, end: 20170427
  32. NEURORUBIN [Concomitant]
     Dosage: 2 DF, QD (1 DF BID)
     Route: 048
     Dates: start: 20170427
  33. NEURORUBIN [Concomitant]
     Dosage: 2 DF, QD (1 DF BID)
     Route: 048
     Dates: start: 20170511, end: 20170615
  34. NEURORUBIN [Concomitant]
     Dosage: 2 DF, QD (1 DF BID)
     Route: 048
     Dates: start: 20170615
  35. MOTILIUM [Concomitant]
     Active Substance: DOMPERIDONE
     Indication: Prophylaxis
     Dosage: 30 MG, QD (10 MG, TID)
     Route: 048
     Dates: start: 20170310, end: 20170405
  36. MOTILIUM [Concomitant]
     Active Substance: DOMPERIDONE
     Dosage: 10 MG, QD
     Route: 048
     Dates: start: 20170310, end: 20170405
  37. MOTILIUM [Concomitant]
     Active Substance: DOMPERIDONE
     Dosage: 30 MG, QD (10 MG, TID)
     Route: 048
     Dates: start: 20170405
  38. MOTILIUM [Concomitant]
     Active Substance: DOMPERIDONE
     Dosage: 10 MG, QD
     Route: 048
     Dates: start: 20170406, end: 20170409
  39. MOTILIUM [Concomitant]
     Active Substance: DOMPERIDONE
     Dosage: 10 MG, TID
     Route: 048
     Dates: start: 20170406, end: 20170409
  40. MOTILIUM [Concomitant]
     Active Substance: DOMPERIDONE
     Dosage: UNK
     Route: 065
     Dates: start: 20170525, end: 20170625
  41. MOTILIUM [Concomitant]
     Active Substance: DOMPERIDONE
     Dosage: UNK
     Route: 065
     Dates: start: 20180615
  42. VIGANTOL [Concomitant]
     Indication: Vitamin D deficiency
     Dosage: 4 DRP, QD (4 GTT, QD)
     Route: 048
     Dates: start: 20170320
  43. CLOFAZIMINE [Concomitant]
     Active Substance: CLOFAZIMINE
     Indication: Tuberculosis
     Dosage: UNK
     Route: 065
     Dates: start: 20170612
  44. CLOFAZIMINE [Concomitant]
     Active Substance: CLOFAZIMINE
     Indication: Pulmonary tuberculosis
  45. BEDAQUILINE [Concomitant]
     Active Substance: BEDAQUILINE
     Indication: Pulmonary tuberculosis
     Dosage: UNK
     Route: 065
  46. BEDAQUILINE [Concomitant]
     Active Substance: BEDAQUILINE
     Indication: Tuberculosis
     Dosage: UNK
     Route: 065
     Dates: start: 20170510
  47. LEVOFLOXACIN [Concomitant]
     Active Substance: LEVOFLOXACIN
     Indication: Tuberculosis
     Dosage: UNK
     Route: 065
     Dates: start: 20170525
  48. LEVOFLOXACIN [Concomitant]
     Active Substance: LEVOFLOXACIN
     Indication: Pulmonary tuberculosis
  49. METOCLOPRAMIDE HYDROCHLORIDE [Concomitant]
     Active Substance: METOCLOPRAMIDE HYDROCHLORIDE
     Indication: Prophylaxis
     Dosage: UNK
     Route: 065
     Dates: start: 20170410, end: 20170427

REACTIONS (6)
  - Leukopenia [Not Recovered/Not Resolved]
  - Anaemia [Recovered/Resolved]
  - Neutropenia [Recovered/Resolved]
  - Hepatitis [Recovered/Resolved]
  - Photosensitivity reaction [Recovered/Resolved]
  - Incorrect product administration duration [Unknown]

NARRATIVE: CASE EVENT DATE: 20170403
